FAERS Safety Report 17711429 (Version 1)
Quarter: 2020Q2

REPORT INFORMATION
  Report Type: Spontaneous
  Country: US (occurrence: US)
  Receive Date: 20200424
  Receipt Date: 20200424
  Transmission Date: 20200714
  Serious: No
  Sender: FDA-Public Use
  Company Number: None

PATIENT
  Age: 45 Year
  Sex: Female

DRUGS (1)
  1. CAPECITABINE 150MG [Suspect]
     Active Substance: CAPECITABINE
     Route: 048
     Dates: start: 202004

REACTIONS (2)
  - Neuropathy peripheral [None]
  - Swelling [None]

NARRATIVE: CASE EVENT DATE: 20200424
